FAERS Safety Report 9404466 (Version 3)
Quarter: 2013Q4

REPORT INFORMATION
  Report Type: Spontaneous
  Country: US (occurrence: None)
  Receive Date: 20130715
  Receipt Date: 20131107
  Transmission Date: 20140711
  Serious: Yes (Life-Threatening, Hospitalization)
  Sender: FDA-Public Use
  Company Number: 2013-1113

PATIENT
  Age: 73 Year
  Sex: Male
  Weight: 66.9 kg

DRUGS (3)
  1. CARFILZOMIB [Suspect]
     Indication: PLASMA CELL MYELOMA
     Dosage: DAY 1, 2, 8, 9, 15, 16, INTRAVENOUS
     Route: 042
     Dates: start: 20130409, end: 20130626
  2. LENALIDOMIDE [Concomitant]
  3. DEXAMETHASONE (DEXAMETHASONE) [Concomitant]

REACTIONS (24)
  - Upper respiratory tract infection [None]
  - Neutropenia [None]
  - Fatigue [None]
  - Diarrhoea [None]
  - Body temperature increased [None]
  - Dyspnoea [None]
  - Hypotension [None]
  - Blood creatinine increased [None]
  - Anaemia [None]
  - Pleural effusion [None]
  - Lung infiltration [None]
  - Leukopenia [None]
  - Thrombocytopenia [None]
  - Lymphopenia [None]
  - Pulmonary oedema [None]
  - Respiratory failure [None]
  - Acute respiratory distress syndrome [None]
  - Pneumonitis [None]
  - Fluid overload [None]
  - Diastolic dysfunction [None]
  - Bronchospasm [None]
  - Cryptococcosis [None]
  - Hypovolaemia [None]
  - Viral infection [None]
